FAERS Safety Report 25647087 (Version 2)
Quarter: 2025Q3

REPORT INFORMATION
  Report Type: Report from Study
  Country: US (occurrence: US)
  Receive Date: 20250806
  Receipt Date: 20250922
  Transmission Date: 20251021
  Serious: No
  Sender: ALEXION PHARMACEUTICALS
  Company Number: US-AstraZeneca-CH-00923225A

PATIENT
  Sex: Male

DRUGS (1)
  1. ONGLYZA [Suspect]
     Active Substance: SAXAGLIPTIN HYDROCHLORIDE
     Route: 065

REACTIONS (6)
  - General physical health deterioration [Unknown]
  - Dizziness [Unknown]
  - Muscle disorder [Unknown]
  - Periarthritis [Unknown]
  - Activities of daily living decreased [Unknown]
  - Therapy cessation [Unknown]
